FAERS Safety Report 21653583 (Version 1)
Quarter: 2022Q4

REPORT INFORMATION
  Report Type: Spontaneous
  Country: CN (occurrence: None)
  Receive Date: 20221129
  Receipt Date: 20221129
  Transmission Date: 20230113
  Serious: Yes (Other)
  Sender: FDA-Public Use
  Company Number: CN-ROCHE-3226531

PATIENT
  Age: 46 Year
  Sex: Female

DRUGS (9)
  1. HERCEPTIN [Suspect]
     Active Substance: TRASTUZUMAB
     Indication: Breast cancer
     Dosage: 25-OCT-2019, 17-NOV-2019, 10-DEC-2019, 29-DEC-2019, 18-JAN-2020, 8 MG/KG FOR THE FIRST DOSE, FOLLOWE
     Route: 065
  2. HERCEPTIN [Suspect]
     Active Substance: TRASTUZUMAB
     Dosage: 01-FEB-2020, 28-FEB-2020, 27-MAR-2020, THP REGIMEN
     Route: 065
  3. PERJETA [Suspect]
     Active Substance: PERTUZUMAB
     Indication: Breast cancer
     Dosage: 01-FEB-2020, 28-FEB-2020, 27-MAR-2020, THP REGIMEN
     Route: 065
  4. PERJETA [Suspect]
     Active Substance: PERTUZUMAB
     Dosage: HP REGIMEN
     Route: 065
  5. EPIRUBICIN [Concomitant]
     Active Substance: EPIRUBICIN
     Indication: Breast cancer
     Dosage: 13-SEP-2019, 03-OCT-2019, EC REGIMEN
  6. CYCLOPHOSPHAMIDE [Concomitant]
     Active Substance: CYCLOPHOSPHAMIDE
     Indication: Breast cancer
     Dosage: 13-SEP-2019, 03-OCT-2019, EC REGIMEN
  7. DOCETAXEL [Concomitant]
     Active Substance: DOCETAXEL
     Indication: Breast cancer
     Dosage: 25-OCT-2019, 17-NOV-2019, 10-DEC-2019, 29-DEC-2019, 18-JAN-2020, TCBH REGIMEN
  8. CARBOPLATIN [Concomitant]
     Active Substance: CARBOPLATIN
     Indication: Breast cancer
     Dosage: 25-OCT-2019, 17-NOV-2019, 10-DEC-2019, 29-DEC-2019, 18-JAN-2020, TCBH REGIMEN,?AUC 6
  9. PACLITAXEL [Concomitant]
     Active Substance: PACLITAXEL
     Indication: Breast cancer
     Dosage: 01-FEB-2020, 28-FEB-2020, 27-MAR-2020, THP REGIMEN

REACTIONS (1)
  - Myelosuppression [Unknown]
